FAERS Safety Report 12516853 (Version 6)
Quarter: 2016Q3

REPORT INFORMATION
  Report Type: Report from Study
  Country: US (occurrence: US)
  Receive Date: 20160630
  Receipt Date: 20160926
  Transmission Date: 20161109
  Serious: Yes (Other)
  Sender: FDA-Public Use
  Company Number: US-BAYER-2016-123944

PATIENT
  Age: 58 Year
  Sex: Female

DRUGS (8)
  1. NITROFURANTOIN. [Concomitant]
     Active Substance: NITROFURANTOIN
  2. ADEMPAS [Suspect]
     Active Substance: RIOCIGUAT
     Indication: PULMONARY ARTERIAL HYPERTENSION
     Dosage: UNK
     Route: 048
  3. ADEMPAS [Suspect]
     Active Substance: RIOCIGUAT
     Indication: PULMONARY ARTERIAL HYPERTENSION
     Dosage: 1.5 MG, TID
     Route: 048
     Dates: start: 20160625
  4. ADEMPAS [Suspect]
     Active Substance: RIOCIGUAT
     Indication: PULMONARY ARTERIAL HYPERTENSION
     Dosage: 2.5 MG, TID
     Route: 048
     Dates: start: 20160823
  5. ADEMPAS [Suspect]
     Active Substance: RIOCIGUAT
     Indication: PULMONARY ARTERIAL HYPERTENSION
     Dosage: 2 MG, TID
     Route: 048
     Dates: start: 20160802
  6. ADEMPAS [Suspect]
     Active Substance: RIOCIGUAT
     Indication: PULMONARY ARTERIAL HYPERTENSION
     Dosage: 1 MG, TID
     Route: 048
     Dates: start: 20160324
  7. ADEMPAS [Suspect]
     Active Substance: RIOCIGUAT
     Indication: PULMONARY ARTERIAL HYPERTENSION
     Dosage: 1 MG, TID
     Route: 048
     Dates: start: 20160422
  8. WARFARIN [Concomitant]
     Active Substance: WARFARIN

REACTIONS (24)
  - Hypoaesthesia [None]
  - Visual impairment [None]
  - Fatigue [None]
  - Dizziness [None]
  - Limb injury [None]
  - Middle insomnia [None]
  - Dizziness [None]
  - Loss of consciousness [None]
  - Fall [None]
  - Hot flush [None]
  - Dyspnoea [None]
  - Paraesthesia [None]
  - Fall [None]
  - Haemorrhagic diathesis [None]
  - Somnolence [None]
  - Increased tendency to bruise [None]
  - Gastrooesophageal reflux disease [None]
  - Chest pain [None]
  - Hallucination, visual [None]
  - Rash [None]
  - Panic attack [None]
  - Pain [None]
  - Headache [None]
  - Contusion [None]

NARRATIVE: CASE EVENT DATE: 20160323
